FAERS Safety Report 13528286 (Version 2)
Quarter: 2017Q2

REPORT INFORMATION
  Report Type: Spontaneous
  Country: FR (occurrence: FR)
  Receive Date: 20170509
  Receipt Date: 20170516
  Transmission Date: 20170830
  Serious: Yes (Hospitalization)
  Sender: FDA-Public Use
  Company Number: FR-SA-2017SA081582

PATIENT
  Age: 55 Year
  Sex: Female

DRUGS (11)
  1. BISOPROLOL HEMIFUMARATE [Suspect]
     Active Substance: BISOPROLOL FUMARATE
     Route: 048
  2. BROMAZEPAM [Suspect]
     Active Substance: BROMAZEPAM
     Dosage: BROMAZEPAM (BROMAZEPAM) 6MG (1/4-1/2-1/4) PER DAY
     Route: 048
  3. LEVOTHYROX [Suspect]
     Active Substance: LEVOTHYROXINE
     Route: 048
  4. ZOLPIDEM [Suspect]
     Active Substance: ZOLPIDEM\ZOLPIDEM TARTRATE
     Route: 048
  5. ATORVASTATIN [Suspect]
     Active Substance: ATORVASTATIN
     Route: 048
  6. ESOMEPRAZOLE [Suspect]
     Active Substance: ESOMEPRAZOLE
     Route: 065
  7. RAMIPRIL. [Suspect]
     Active Substance: RAMIPRIL
     Route: 048
  8. METEOSPASMYL [Suspect]
     Active Substance: ALVERINE CITRATE\DIMETHICONE
     Route: 048
  9. SYMBICORT [Suspect]
     Active Substance: BUDESONIDE\FORMOTEROL FUMARATE DIHYDRATE
     Dosage: RESPIRATORY (INHALATION)?FORMULATION: INHALANT POWDER
     Route: 055
  10. TOCOPHEROL [Suspect]
     Active Substance: TOCOPHEROL
     Route: 048
     Dates: end: 20170401
  11. AUGMENTIN [Suspect]
     Active Substance: AMOXICILLIN\CLAVULANATE POTASSIUM
     Indication: INFLUENZA
     Route: 048
     Dates: start: 201612

REACTIONS (1)
  - Hepatocellular injury [Not Recovered/Not Resolved]

NARRATIVE: CASE EVENT DATE: 20170408
